FAERS Safety Report 4944489-8 (Version None)
Quarter: 2006Q1

REPORT INFORMATION
  Report Type: 
  Country: None (occurrence: None)
  Receive Date: 20060315
  Receipt Date: 20060308
  Transmission Date: 20060701
  Serious: Yes (Death, Congenital Anomaly, Other)
  Sender: FDA-Public Use
  Company Number: US-AVENTIS-200612231US

PATIENT

DRUGS (4)
  1. METRONIDAZOLE [Suspect]
     Indication: CROHN'S DISEASE
     Dosage: DOSE: UNKNOWN
  2. INFLIXIMAB [Suspect]
     Indication: CROHN'S DISEASE
     Dosage: DOSE: UNKNOWN
     Route: 064
  3. AZOTHIAPRINE [Suspect]
     Indication: CROHN'S DISEASE
     Dosage: DOSE: UNKNOWN
     Route: 064
  4. MESALAMINE [Suspect]
     Indication: CROHN'S DISEASE
     Dosage: DOSE: UNKNOWN
     Route: 064

REACTIONS (7)
  - CEREBRAL HAEMORRHAGE [None]
  - CEREBRAL HAEMORRHAGE NEONATAL [None]
  - DEATH NEONATAL [None]
  - DRUG EXPOSURE DURING PREGNANCY [None]
  - PREMATURE BABY [None]
  - PULMONARY HAEMORRHAGE [None]
  - SMALL FOR DATES BABY [None]
